FAERS Safety Report 7044410-5 (Version None)
Quarter: 2010Q4

REPORT INFORMATION
  Report Type: 
  Country: None (occurrence: None)
  Receive Date: 20101014
  Receipt Date: 20101004
  Transmission Date: 20110411
  Serious: Yes (Other)
  Sender: FDA-Public Use
  Company Number: US-ELI_LILLY_AND_COMPANY-US201008006861

PATIENT
  Sex: Female

DRUGS (14)
  1. FORTEO [Suspect]
     Indication: OSTEOPOROSIS
     Dosage: 20 UG, DAILY (1/D)
     Dates: start: 20091214
  2. DIOVAN [Concomitant]
     Dosage: 80 MG, DAILY (1/D)
  3. MICRO-K [Concomitant]
     Dosage: 10 MEQ, DAILY (1/D)
  4. ZOLOFT [Concomitant]
     Dosage: 50 MG, EACH EVENING
  5. LEVOTHYROXINE [Concomitant]
     Dosage: 125 UG, DAILY (1/D)
  6. PREDNISONE [Concomitant]
     Dosage: 5 MG, DAILY (1/D)
  7. PROTONIX [Concomitant]
     Dosage: 40 MG, DAILY (1/D)
  8. AMBIEN [Concomitant]
     Dosage: 10 MG, EACH EVENING
  9. FENTANYL [Concomitant]
     Dosage: 50 UG, OTHER
  10. GABAPENTIN [Concomitant]
     Dosage: 60 MG, QOD
  11. MIRALAX [Concomitant]
     Dosage: UNK, DAILY (1/D)
  12. VITAMIN D3 [Concomitant]
     Dosage: 1000 IU, DAILY (1/D)
  13. CALCIUM CARBONATE [Concomitant]
     Dosage: 600 MG, DAILY (1/D)
  14. CENTRUM SILVER [Concomitant]
     Dosage: UNK, DAILY (1/D)

REACTIONS (2)
  - FALL [None]
  - FEMUR FRACTURE [None]
